FAERS Safety Report 15470666 (Version 1)
Quarter: 2018Q4

REPORT INFORMATION
  Report Type: Spontaneous
  Country: CA (occurrence: CA)
  Receive Date: 20181005
  Receipt Date: 20181005
  Transmission Date: 20190205
  Serious: Yes (Other)
  Sender: FDA-Public Use
  Company Number: CA-NOVOPROD-624569

PATIENT
  Age: 63 Year
  Sex: Female

DRUGS (1)
  1. VICTOZA [Suspect]
     Active Substance: LIRAGLUTIDE
     Indication: DIABETES MELLITUS
     Dosage: UNK
     Route: 065

REACTIONS (18)
  - Hyperhidrosis [Recovering/Resolving]
  - Diabetes mellitus inadequate control [Recovering/Resolving]
  - Vomiting [Recovering/Resolving]
  - Impaired work ability [Recovering/Resolving]
  - Emotional distress [Recovering/Resolving]
  - Diabetes mellitus [Recovering/Resolving]
  - Tremor [Recovering/Resolving]
  - Drug ineffective [Recovering/Resolving]
  - Abdominal pain [Recovering/Resolving]
  - Cholelithiasis [Recovering/Resolving]
  - Diarrhoea [Recovering/Resolving]
  - Pancreatitis [Recovering/Resolving]
  - Depression [Recovering/Resolving]
  - Weight decreased [Recovering/Resolving]
  - Urinary incontinence [Recovering/Resolving]
  - Colitis ischaemic [Recovering/Resolving]
  - Dehydration [Recovering/Resolving]
  - Cholecystectomy [Recovering/Resolving]
